FAERS Safety Report 20994319 (Version 1)
Quarter: 2022Q2

REPORT INFORMATION
  Report Type: Spontaneous
  Country: CN (occurrence: CN)
  Receive Date: 20220622
  Receipt Date: 20220622
  Transmission Date: 20220720
  Serious: Yes (Other)
  Sender: FDA-Public Use
  Company Number: CN-ELI_LILLY_AND_COMPANY-CN202206005490

PATIENT
  Age: 46 Year
  Sex: Female
  Weight: 53 kg

DRUGS (2)
  1. GEMZAR [Suspect]
     Active Substance: GEMCITABINE HYDROCHLORIDE
     Indication: Neoplasm malignant
     Dosage: 2 G, DAILY
     Route: 041
     Dates: start: 20220526, end: 20220526
  2. HALAVEN [Suspect]
     Active Substance: ERIBULIN MESYLATE
     Indication: Neoplasm malignant
     Dosage: 2 MG, SINGLE
     Route: 041
     Dates: start: 20220526, end: 20220526

REACTIONS (2)
  - Liver function test abnormal [Recovered/Resolved]
  - Drug-induced liver injury [Unknown]

NARRATIVE: CASE EVENT DATE: 20220531
